FAERS Safety Report 9443458 (Version 2)
Quarter: 2013Q3

REPORT INFORMATION
  Report Type: Report from Study
  Country: AU (occurrence: AU)
  Receive Date: 20130806
  Receipt Date: 20130812
  Transmission Date: 20140515
  Serious: Yes (Death)
  Sender: FDA-Public Use
  Company Number: PHHY2013AU084099

PATIENT
  Sex: Female

DRUGS (13)
  1. ACLASTA [Suspect]
     Dosage: 5 MG, UNK
     Route: 042
     Dates: start: 20100414
  2. ACLASTA [Suspect]
     Dosage: 5 MG, UNK
     Route: 042
     Dates: start: 20110429
  3. ACLASTA [Suspect]
     Dosage: 5 MG, UNK
     Route: 042
     Dates: start: 20120602
  4. ATACAND [Concomitant]
     Dosage: UNK UKN, UNK
  5. CUPRIMINE [Concomitant]
     Dosage: UNK UKN, UNK
  6. ATROVENT [Concomitant]
     Dosage: UNK UKN, UNK
  7. DIABOSE [Concomitant]
     Dosage: UNK UKN, UNK
  8. DOXYCYCLINE [Concomitant]
     Dosage: UNK UKN, UNK
  9. LASIX [Concomitant]
     Dosage: UNK UKN, UNK
  10. VITAMIN  D [Concomitant]
     Dosage: UNK UKN, UNK
  11. PREDNISOLONE [Concomitant]
     Dosage: UNK UKN, UNK
  12. SERETIDE [Concomitant]
     Dosage: UNK UKN, UNK
  13. VALSARTAN [Concomitant]
     Dosage: UNK UKN, UNK

REACTIONS (4)
  - Asthma [Fatal]
  - Lung disorder [Unknown]
  - Respiratory disorder [Unknown]
  - Dyspnoea [Unknown]
